FAERS Safety Report 18375349 (Version 1)
Quarter: 2020Q4

REPORT INFORMATION
  Report Type: Report from Study
  Country: US (occurrence: US)
  Receive Date: 20201013
  Receipt Date: 20201013
  Transmission Date: 20210114
  Serious: Yes (Hospitalization)
  Sender: FDA-Public Use
  Company Number: US-GILEAD-2020-0498206

PATIENT
  Age: 34 Year
  Sex: Male

DRUGS (2)
  1. KITABIS PAK [Concomitant]
     Active Substance: TOBRAMYCIN
     Dosage: 300MG/5ML AMPULE INHALE 300 MG (1 AMPULE) VIA NEBULIZER EVERY 12 HOURS, EVERY OTHER MONTH
  2. AZTREONAM LYSINE [Suspect]
     Active Substance: AZTREONAM LYSINE
     Indication: CYSTIC FIBROSIS
     Dosage: 75 MG, TID CYCLING EVERY OTHER MONTH
     Route: 055

REACTIONS (1)
  - Condition aggravated [Unknown]

NARRATIVE: CASE EVENT DATE: 202007
